FAERS Safety Report 23951487 (Version 1)
Quarter: 2024Q2

REPORT INFORMATION
  Report Type: Report from Study
  Country: US (occurrence: US)
  Receive Date: 20240607
  Receipt Date: 20240607
  Transmission Date: 20240716
  Serious: No
  Sender: FDA-Public Use
  Company Number: US-ACADIA PHARMACEUTICALS INC.-ACA-2024-PIM-002404

PATIENT
  Sex: Male

DRUGS (25)
  1. NUPLAZID [Suspect]
     Active Substance: PIMAVANSERIN TARTRATE
     Indication: Parkinson^s disease
     Dosage: 34 MILLIGRAM, QD
     Route: 048
     Dates: start: 202301
  2. OMEPRAZOLE [Concomitant]
     Active Substance: DONEPEZIL HYDROCHLORIDE\OMEPRAZOLE\OMEPRAZOLE MAGNESIUM
  3. TYLENOL [Concomitant]
     Active Substance: ACETAMINOPHEN
  4. DICLOFENAC [Concomitant]
     Active Substance: DICLOFENAC
  5. ATORVASTATIN [Concomitant]
     Active Substance: ATORVASTATIN
  6. CARBIDOPA LEVODOPA [Concomitant]
     Active Substance: CARBIDOPA\LEVODOPA
  7. ASPIRIN [Concomitant]
     Active Substance: ASPIRIN
  8. DIAZEPAM [Concomitant]
     Active Substance: DIAZEPAM
  9. PEPCID [Concomitant]
     Active Substance: FAMOTIDINE
  10. TAMSULOSIN [Concomitant]
     Active Substance: TAMSULOSIN
  11. GABAPENTIN [Concomitant]
     Active Substance: GABAPENTIN
  12. HYDROCODONE [Concomitant]
     Active Substance: HYDROCODONE
  13. MYRBETRIQ [Concomitant]
     Active Substance: MIRABEGRON
  14. LISINOPRIL [Concomitant]
     Active Substance: LISINOPRIL
  15. METHOCARBAMOL [Concomitant]
     Active Substance: METHOCARBAMOL
  16. MAGNESIUM [Concomitant]
     Active Substance: MAGNESIUM
  17. ZINC [Concomitant]
     Active Substance: PYRITHIONE ZINC\ZINC\ZINC CHLORIDE
  18. LASIX [Concomitant]
     Active Substance: FUROSEMIDE
  19. POTASSIUM [Concomitant]
     Active Substance: POTASSIUM
  20. METOPROLOL [Concomitant]
     Active Substance: METOPROLOL
  21. VITAMIN D3 [Concomitant]
     Active Substance: CHOLECALCIFEROL
  22. RIVASTIGMINE [Concomitant]
     Active Substance: RIVASTIGMINE
  23. CYANOCOBALAMIN [Concomitant]
     Active Substance: CYANOCOBALAMIN
  24. SUPER MULTIPLE [Concomitant]
  25. ROPINIROLE [Suspect]
     Active Substance: ROPINIROLE

REACTIONS (1)
  - Hiccups [Unknown]
